FAERS Safety Report 6932382-0 (Version None)
Quarter: 2010Q3

REPORT INFORMATION
  Report Type: 
  Country: None (occurrence: None)
  Receive Date: 20100819
  Receipt Date: 20100715
  Transmission Date: 20110219
  Serious: No
  Sender: FDA-Public Use
  Company Number: US-BAYER-201028122NA

PATIENT
  Age: 20 Year
  Sex: Female

DRUGS (1)
  1. MIRENA [Suspect]
     Indication: CONTRACEPTION
     Dosage: FREQUENCY: CONTINUOUS
     Route: 015
     Dates: start: 20100201

REACTIONS (7)
  - ABDOMINAL PAIN [None]
  - APHAGIA [None]
  - CRYING [None]
  - FATIGUE [None]
  - INSOMNIA [None]
  - NAUSEA [None]
  - VAGINAL DISCHARGE [None]
